FAERS Safety Report 8855061 (Version 2)
Quarter: 2012Q4

REPORT INFORMATION
  Report Type: 
  Country: AU (occurrence: AU)
  Receive Date: 20121023
  Receipt Date: 20121217
  Transmission Date: 20130627
  Serious: Yes (Other)
  Sender: FDA-Public Use
  Company Number: AU-009507513-1210AUS000050

PATIENT
  Age: 53 Year
  Sex: Female
  Weight: 90 kg

DRUGS (2)
  1. VICTRELIS 200 MG [Suspect]
     Indication: CHRONIC HEPATITIS C
     Dosage: 2400 mg/day
     Route: 048
  2. VICTRELIS 200 MG [Suspect]
     Indication: HEPATIC CIRRHOSIS

REACTIONS (2)
  - Blister [Unknown]
  - Dermatitis bullous [Unknown]
